FAERS Safety Report 7352355-6 (Version None)
Quarter: 2011Q1

REPORT INFORMATION
  Report Type: 
  Country: None (occurrence: None)
  Receive Date: 20110315
  Receipt Date: 20110304
  Transmission Date: 20110831
  Serious: Yes (Hospitalization)
  Sender: FDA-Public Use
  Company Number: GB-JNJFOC-20110202425

PATIENT
  Age: 21 Year
  Sex: Female

DRUGS (7)
  1. CYCLIZINE [Concomitant]
  2. TRAMADOL HCL [Suspect]
     Indication: ABDOMINAL PAIN
     Route: 065
  3. IBUPROFEN [Concomitant]
  4. TRAMADOL HCL [Suspect]
     Route: 065
  5. METOCLOPRAMIDE HCL [Concomitant]
  6. OMEPRAZOLE [Concomitant]
  7. SUMATRIPTAN SUCCINATE [Concomitant]

REACTIONS (2)
  - SECONDARY ADRENOCORTICAL INSUFFICIENCY [None]
  - HYPERPROLACTINAEMIA [None]
